FAERS Safety Report 7969873-X (Version None)
Quarter: 2011Q4

REPORT INFORMATION
  Report Type: 
  Country: None (occurrence: None)
  Receive Date: 20111121
  Receipt Date: 20110805
  Transmission Date: 20120403
  Serious: No
  Sender: FDA-Public Use
  Company Number: 1000022729

PATIENT
  Age: 44 Year
  Sex: Male

DRUGS (3)
  1. AMBIEN [Concomitant]
  2. PRILOSEC (OMEPRAZOLE) (OMEPRAZOLE) [Concomitant]
  3. VIIBRYD [Suspect]
     Dosage: (1 IN 1 D), ORAL
     Route: 048
     Dates: start: 20110801, end: 20110808

REACTIONS (3)
  - ARTHRALGIA [None]
  - MYALGIA [None]
  - OEDEMA PERIPHERAL [None]
